FAERS Safety Report 9138116 (Version 2)
Quarter: 2013Q2

REPORT INFORMATION
  Report Type: Report from Study
  Country: US (occurrence: US)
  Receive Date: 20130304
  Receipt Date: 20130503
  Transmission Date: 20140414
  Serious: Yes (Other)
  Sender: FDA-Public Use
  Company Number: US-ABBOTT-13P-163-1049450-00

PATIENT
  Age: 54 Year
  Sex: Female

DRUGS (5)
  1. HUMIRA [Suspect]
     Indication: RHEUMATOID ARTHRITIS
     Route: 058
     Dates: start: 201211, end: 20121228
  2. LEVOXYL [Concomitant]
     Indication: HYPOTHYROIDISM
  3. PROVENTIL [Concomitant]
     Indication: ASTHMA
  4. IMITREX [Concomitant]
     Indication: MIGRAINE
  5. EXCEDRIN [Concomitant]
     Indication: MIGRAINE

REACTIONS (10)
  - Musculoskeletal pain [Unknown]
  - Exostosis [Unknown]
  - Rotator cuff repair [Unknown]
  - Injection site pain [Unknown]
  - Urticaria [Unknown]
  - Headache [Unknown]
  - Tenderness [Unknown]
  - Lyme disease [Unknown]
  - Mycoplasma infection [Unknown]
  - Epstein-Barr virus infection [Unknown]
